FAERS Safety Report 11153938 (Version 1)
Quarter: 2015Q2

REPORT INFORMATION
  Report Type: Spontaneous
  Country: US (occurrence: US)
  Receive Date: 20150602
  Receipt Date: 20150602
  Transmission Date: 20150821
  Serious: No
  Sender: FDA-Public Use
  Company Number: US-NOVEN PHARMACEUTICALS, INC.-14US010245

PATIENT
  Age: 50 Year
  Sex: Male

DRUGS (3)
  1. RITALIN [Concomitant]
     Active Substance: METHYLPHENIDATE HYDROCHLORIDE
     Indication: ATTENTION DEFICIT/HYPERACTIVITY DISORDER
     Dosage: UNK
  2. ANTIDEPRESSANTS [Concomitant]
     Active Substance: UNSPECIFIED INGREDIENT
     Indication: DEPRESSION
     Dosage: UNK
  3. DAYTRANA [Suspect]
     Active Substance: METHYLPHENIDATE
     Indication: ATTENTION DEFICIT/HYPERACTIVITY DISORDER
     Dosage: 30 MG, QD
     Route: 062
     Dates: start: 2008

REACTIONS (2)
  - No adverse event [None]
  - Drug dose omission [Not Recovered/Not Resolved]
